FAERS Safety Report 21644742 (Version 1)
Quarter: 2022Q4

REPORT INFORMATION
  Report Type: Report from Study
  Country: US (occurrence: US)
  Receive Date: 20221125
  Receipt Date: 20221125
  Transmission Date: 20230113
  Serious: No
  Sender: FDA-Public Use
  Company Number: US-ABBVIE-4158825

PATIENT
  Sex: Female

DRUGS (5)
  1. HUMIRA [Suspect]
     Active Substance: ADALIMUMAB
     Indication: Rheumatoid arthritis
     Route: 058
  2. MODERNA COVID-19 VACCINE [Concomitant]
     Active Substance: ELASOMERAN
     Indication: COVID-19 screening
     Dosage: FIRST DOSE
     Route: 030
     Dates: start: 20210320, end: 20210320
  3. MODERNA COVID-19 VACCINE [Concomitant]
     Active Substance: ELASOMERAN
     Indication: COVID-19 screening
     Dosage: SECOND DOSE
     Route: 030
     Dates: start: 20210421, end: 20210421
  4. MODERNA COVID-19 VACCINE [Concomitant]
     Active Substance: ELASOMERAN
     Indication: COVID-19 screening
     Dosage: FIRST BOOSTER DOSE
     Route: 030
     Dates: start: 20210918, end: 20210918
  5. MODERNA COVID-19 VACCINE [Concomitant]
     Active Substance: ELASOMERAN
     Indication: COVID-19 screening
     Dosage: SECOND BOOSTER DOSE
     Route: 030
     Dates: start: 20220814, end: 20220814

REACTIONS (1)
  - Pain [Unknown]
